FAERS Safety Report 18356652 (Version 1)
Quarter: 2020Q4

REPORT INFORMATION
  Report Type: Spontaneous
  Country: US (occurrence: US)
  Receive Date: 20201007
  Receipt Date: 20201007
  Transmission Date: 20210114
  Serious: No
  Sender: FDA-Public Use
  Company Number: US-SPROUT PHARMACEUTICALS, INC.-2019SP000126

PATIENT
  Age: 51 Year
  Sex: Female
  Weight: 79.45 kg

DRUGS (1)
  1. ADDYI [Suspect]
     Active Substance: FLIBANSERIN
     Indication: LIBIDO DECREASED
     Route: 048
     Dates: start: 20191112

REACTIONS (6)
  - Nausea [Recovered/Resolved]
  - Feeling abnormal [Recovered/Resolved]
  - Dizziness [Recovered/Resolved]
  - Swelling face [Recovered/Resolved]
  - Product use in unapproved indication [Recovered/Resolved]
  - Pyrexia [Recovered/Resolved]

NARRATIVE: CASE EVENT DATE: 20191112
